FAERS Safety Report 7491947-0 (Version None)
Quarter: 2011Q1

REPORT INFORMATION
  Report Type: 
  Country: None (occurrence: None)
  Receive Date: 20110318
  Receipt Date: 20100831
  Transmission Date: 20110831
  Serious: Yes (Life-Threatening, Hospitalization)
  Sender: FDA-Public Use
  Company Number: 2010SP047271

PATIENT
  Age: 56 Year
  Sex: Male

DRUGS (8)
  1. PEG-INTRON [Suspect]
     Indication: HEPATITIS C
     Dosage: 180 MCG; QW; SC
     Route: 058
     Dates: start: 20100729, end: 20100913
  2. AMLODIPINE [Concomitant]
  3. PROTONIX [Concomitant]
  4. MICARDIS [Concomitant]
  5. METFORMIN HCL [Concomitant]
  6. GLIMEPIRIDE [Concomitant]
  7. RIBAVIRIN [Suspect]
     Indication: HEPATITIS C
     Dosage: 600 MG; BID; PO
     Route: 048
     Dates: start: 20100729, end: 20100913
  8. ZOLPIDEM [Concomitant]

REACTIONS (7)
  - DEHYDRATION [None]
  - DIZZINESS [None]
  - CEREBROVASCULAR ACCIDENT [None]
  - SYNCOPE [None]
  - BLOOD GLUCOSE INCREASED [None]
  - NAUSEA [None]
  - VOMITING [None]
